FAERS Safety Report 10538594 (Version 1)
Quarter: 2014Q4

REPORT INFORMATION
  Report Type: Spontaneous
  Country: GB (occurrence: None)
  Receive Date: 20141021
  Receipt Date: 20141021
  Transmission Date: 20150529
  Serious: Yes (Other)
  Sender: FDA-Public Use
  Company Number: INT_00477_2014

PATIENT
  Age: 60 Year
  Sex: Female

DRUGS (2)
  1. CISPLATIN (CISPLATIN) (HQ SPECIALTY) [Suspect]
     Active Substance: CISPLATIN
     Indication: SMALL CELL LUNG CANCER
     Dosage: DF
  2. ETOPOSIDE. [Concomitant]
     Active Substance: ETOPOSIDE

REACTIONS (4)
  - Hypoaesthesia [None]
  - Pain in extremity [None]
  - Aortic thrombosis [None]
  - Subclavian artery stenosis [None]
